FAERS Safety Report 9533973 (Version 3)
Quarter: 2013Q3

REPORT INFORMATION
  Report Type: Report from Study
  Country: CA (occurrence: CA)
  Receive Date: 20130918
  Receipt Date: 20130924
  Transmission Date: 20140515
  Serious: Yes (Other)
  Sender: FDA-Public Use
  Company Number: CA-ABBVIE-13P-028-1143882-00

PATIENT
  Sex: Male

DRUGS (4)
  1. HUMIRA [Suspect]
     Indication: CROHN^S DISEASE
     Dosage: UNKNOWN
     Route: 058
     Dates: end: 200506
  2. HUMIRA [Suspect]
  3. HUMIRA [Suspect]
  4. HUMIRA [Suspect]

REACTIONS (5)
  - Intestinal resection [Unknown]
  - Disease complication [Unknown]
  - Ileostomy [Unknown]
  - Ileostomy [Unknown]
  - Colostomy infection [Unknown]
